FAERS Safety Report 6456880-1 (Version None)
Quarter: 2009Q4

REPORT INFORMATION
  Report Type: 
  Country: None (occurrence: None)
  Receive Date: 20091120
  Receipt Date: 20091112
  Transmission Date: 20100525
  Serious: Yes (Other)
  Sender: FDA-Public Use
  Company Number: AMAG200900051

PATIENT
  Age: 69 Year
  Sex: Male
  Weight: 91.4 kg

DRUGS (19)
  1. FERAHEME [Suspect]
     Indication: IRON DEFICIENCY ANAEMIA
     Dosage: 7.5 ML (225 MG) SINGLE, INTRAVENOUS
     Route: 042
     Dates: start: 20091112, end: 20091112
  2. FERAHEME [Suspect]
     Indication: RENAL FAILURE CHRONIC
     Dosage: 7.5 ML (225 MG) SINGLE, INTRAVENOUS
     Route: 042
     Dates: start: 20091112, end: 20091112
  3. ALLOPURINOL [Concomitant]
  4. FOLIC ACID [Concomitant]
  5. ZEMPLAR [Concomitant]
  6. NIFEDIPINE [Concomitant]
  7. DIOVAN [Concomitant]
  8. RENVELA (SEVELAMAR CARBONATE) [Concomitant]
  9. PROCRIT [Concomitant]
  10. TIMOLOL (TIMOLOL MALEATE) [Concomitant]
  11. LATANOPROST [Concomitant]
  12. FLAXSEED OIL (LINUM USITATISSIMUM SEED OIL) [Concomitant]
  13. VITAMIN E (TOCOPHERYL ACETATE) [Concomitant]
  14. FISH OIL (FISH OIL) [Concomitant]
  15. CRANBERRY (VACCINIUM MACROCARPON) [Concomitant]
  16. SAW PALMETTO (SERENOA REPENS) [Concomitant]
  17. VITAMIN B COMPLEX CAP [Concomitant]
  18. SODIUM BICARBONATE IN PLASTIC CONTAINER [Concomitant]
  19. INVESTIGATIONAL DRUG [Concomitant]

REACTIONS (10)
  - BLOOD PRESSURE DECREASED [None]
  - CHILLS [None]
  - DIZZINESS [None]
  - FATIGUE [None]
  - FEELING COLD [None]
  - FLUSHING [None]
  - NAUSEA [None]
  - SOMNOLENCE [None]
  - VASODILATATION [None]
  - YAWNING [None]
